FAERS Safety Report 21079901 (Version 3)
Quarter: 2022Q3

REPORT INFORMATION
  Report Type: Report from Study
  Country: GR (occurrence: GR)
  Receive Date: 20220714
  Receipt Date: 20220801
  Transmission Date: 20221027
  Serious: Yes (Hospitalization, Other)
  Sender: FDA-Public Use
  Company Number: GR-ABBVIE-22K-066-4466462-00

PATIENT
  Age: 76 Year
  Sex: Female

DRUGS (4)
  1. CARBIDOPA\LEVODOPA [Suspect]
     Active Substance: CARBIDOPA\LEVODOPA
     Indication: Parkinson^s disease
     Dosage: MORNING DOSE: 9.7ML; CONTINUOUS RATE: 2.2ML/H; EXTRA DOSE: 2.2ML
     Route: 050
     Dates: start: 20190124, end: 20220710
  2. CARBIDOPA\LEVODOPA [Suspect]
     Active Substance: CARBIDOPA\LEVODOPA
     Dosage: MORNING DOSE: 9.7ML; CONTINUOUS RATE: 2.2ML/H; EXTRA DOSE: 2.2ML
     Route: 050
     Dates: start: 20220727
  3. TAVOR [Concomitant]
     Indication: Anxiety
     Route: 048
  4. SYMMETREL [Concomitant]
     Active Substance: AMANTADINE HYDROCHLORIDE
     Indication: Hyperkinesia
     Route: 048

REACTIONS (3)
  - COVID-19 [Recovered/Resolved]
  - Hip fracture [Recovering/Resolving]
  - Fall [Recovered/Resolved]

NARRATIVE: CASE EVENT DATE: 20220710
